FAERS Safety Report 10173088 (Version 1)
Quarter: 2014Q2

REPORT INFORMATION
  Report Type: Spontaneous
  Country: US (occurrence: None)
  Receive Date: 20140514
  Receipt Date: 20140514
  Transmission Date: 20141212
  Serious: No
  Sender: FDA-Public Use
  Company Number: None

PATIENT
  Age: 55 Year
  Sex: Female
  Weight: 63.5 kg

DRUGS (1)
  1. ACTHAR HP [Suspect]
     Indication: GLOMERULONEPHRITIS PROLIFERATIVE
     Route: 058
     Dates: start: 20140311, end: 20140508

REACTIONS (2)
  - Blood glucose increased [None]
  - White blood cell count increased [None]
